FAERS Safety Report 6759345-2 (Version None)
Quarter: 2010Q2

REPORT INFORMATION
  Report Type: 
  Country: None (occurrence: None)
  Receive Date: 20100607
  Receipt Date: 20100526
  Transmission Date: 20101027
  Serious: Yes (Death)
  Sender: FDA-Public Use
  Company Number: NL-ELI_LILLY_AND_COMPANY-NL201005007382

PATIENT
  Sex: Male

DRUGS (10)
  1. ZYPREXA [Suspect]
     Indication: DISORIENTATION
     Dosage: 5 MG, DAILY (1/D)
     Dates: start: 20100315, end: 20100405
  2. ZYPREXA [Suspect]
     Dosage: 10 MG, DAILY (1/D)
     Dates: start: 20100406
  3. SELEKTINE [Concomitant]
     Dosage: 40 MG, DAILY (1/D)
     Dates: start: 20040511
  4. ACENOCOUMAROL [Concomitant]
     Indication: THROMBOSIS
     Dosage: 1 MG, UNK
     Dates: start: 20040511
  5. LANOXIN [Concomitant]
     Dosage: 0.125 MG, DAILY (1/D)
     Dates: start: 20080624
  6. LYRICA [Concomitant]
     Dosage: 75 MG, UNK
  7. THIAMINE HYDROCHLORIDE [Concomitant]
     Dosage: 25 MG, UNK
  8. DIPIPERON [Concomitant]
     Dosage: 40 MG, UNK
  9. LASIX [Concomitant]
     Dosage: 40 MG, DAILY (1/D)
     Dates: start: 20080624
  10. SPIRONOLACTONUM [Concomitant]
     Dosage: 25 MG, DAILY (1/D)
     Dates: start: 20080624

REACTIONS (2)
  - CARDIAC ARREST [None]
  - OFF LABEL USE [None]
